FAERS Safety Report 18747053 (Version 1)
Quarter: 2021Q1

REPORT INFORMATION
  Report Type: Report from Study
  Country: US (occurrence: US)
  Receive Date: 20210115
  Receipt Date: 20210115
  Transmission Date: 20210419
  Serious: Yes (Death)
  Sender: FDA-Public Use
  Company Number: US-PFIZER INC-2020509666

PATIENT
  Age: 74 Year
  Sex: Male

DRUGS (1)
  1. SUTENT [Suspect]
     Active Substance: SUNITINIB MALATE
     Indication: GASTROINTESTINAL STROMAL TUMOUR
     Dosage: 50 MG, CYCLIC (50 MG DAILY FOR 2 WEEKS THEN 1 WEEK OFF)
     Route: 048
     Dates: start: 20201220

REACTIONS (1)
  - Death [Fatal]

NARRATIVE: CASE EVENT DATE: 20210107
